FAERS Safety Report 14816807 (Version 9)
Quarter: 2019Q4

REPORT INFORMATION
  Report Type: Spontaneous
  Country: US (occurrence: US)
  Receive Date: 20180426
  Receipt Date: 20191105
  Transmission Date: 20200122
  Serious: Yes (Hospitalization, Other)
  Sender: FDA-Public Use
  Company Number: US-ACTELION-A-NJ2018-171131

PATIENT
  Age: 49 Year
  Sex: Female
  Weight: 99.77 kg

DRUGS (2)
  1. UPTRAVI [Suspect]
     Active Substance: SELEXIPAG
     Indication: PULMONARY ARTERIAL HYPERTENSION
     Dosage: 1600 MCG, BID
     Route: 048
  2. LETAIRIS [Concomitant]
     Active Substance: AMBRISENTAN

REACTIONS (19)
  - Overdose [Unknown]
  - Unresponsive to stimuli [Unknown]
  - Ingrowing nail [Unknown]
  - Fatigue [Unknown]
  - Chronic obstructive pulmonary disease [Unknown]
  - Cardiac failure congestive [Unknown]
  - Dehydration [Unknown]
  - Nail operation [Unknown]
  - Product dose omission [Unknown]
  - Syncope [Unknown]
  - Lethargy [Unknown]
  - Fluid retention [Unknown]
  - Contusion [Unknown]
  - Abscess limb [Not Recovered/Not Resolved]
  - Insomnia [Unknown]
  - Chronic kidney disease [Unknown]
  - Abdominal discomfort [Unknown]
  - Hospice care [Unknown]
  - Oxygen saturation decreased [Unknown]

NARRATIVE: CASE EVENT DATE: 201804
